FAERS Safety Report 18122943 (Version 1)
Quarter: 2020Q3

REPORT INFORMATION
  Report Type: Spontaneous
  Country: DE (occurrence: DE)
  Receive Date: 20200807
  Receipt Date: 20200807
  Transmission Date: 20201103
  Serious: Yes (Life-Threatening)
  Sender: FDA-Public Use
  Company Number: DE-TORRENT-00018076

PATIENT
  Age: 30 Year
  Sex: Female

DRUGS (1)
  1. CETIRIZIN HEUMANN 10 MG FILMTABLETTEN [Suspect]
     Active Substance: CETIRIZINE HYDROCHLORIDE
     Indication: RHINITIS ALLERGIC
     Dosage: TOTAL

REACTIONS (4)
  - Autoscopy [Recovered/Resolved]
  - Fear of death [Recovered/Resolved]
  - Panic attack [Recovered/Resolved]
  - Feeling abnormal [Recovered/Resolved]

NARRATIVE: CASE EVENT DATE: 20200718
